FAERS Safety Report 8618484-1 (Version None)
Quarter: 2012Q2

REPORT INFORMATION
  Report Type: 
  Country: None (occurrence: None)
  Receive Date: 20120423
  Receipt Date: 20100122
  Transmission Date: 20120825
  Serious: Yes (Hospitalization)
  Sender: FDA-Public Use
  Company Number: PHEH2010US01443

PATIENT
  Sex: Female

DRUGS (2)
  1. VITAMIN D [Concomitant]
  2. EXJADE [Suspect]
     Indication: IRON OVERLOAD
     Dosage: 500 MG DAILY, ORAL
     Route: 048
     Dates: start: 20071203, end: 20091120

REACTIONS (1)
  - SICKLE CELL ANAEMIA WITH CRISIS [None]
